FAERS Safety Report 6308708-8 (Version None)
Quarter: 2009Q3

REPORT INFORMATION
  Report Type: 
  Country: None (occurrence: None)
  Receive Date: 20090813
  Receipt Date: 20080219
  Transmission Date: 20100115
  Serious: Yes (Other)
  Sender: FDA-Public Use
  Company Number: US-ALLERGAN-0801020US

PATIENT
  Age: 79 Year
  Sex: Female

DRUGS (4)
  1. COMBIGAN [Suspect]
     Indication: GLAUCOMA
     Dosage: 1 GTT, BID
     Route: 047
     Dates: start: 20071212, end: 20080112
  2. LOTENSIN [Concomitant]
     Indication: BLOOD PRESSURE
  3. ATENOLOL [Concomitant]
     Indication: BLOOD PRESSURE
     Dates: end: 20080112
  4. PREDNISONE [Concomitant]
     Indication: DRUG USE FOR UNKNOWN INDICATION

REACTIONS (3)
  - AMNESIA [None]
  - CONFUSIONAL STATE [None]
  - DIZZINESS [None]
